FAERS Safety Report 14308422 (Version 7)
Quarter: 2018Q3

REPORT INFORMATION
  Report Type: Spontaneous
  Country: CA (occurrence: CA)
  Receive Date: 20171220
  Receipt Date: 20180829
  Transmission Date: 20181010
  Serious: Yes (Other)
  Sender: FDA-Public Use
  Company Number: CA-PFIZER INC-2017539814

PATIENT
  Age: 22 Year
  Sex: Male

DRUGS (4)
  1. CELEBREX [Suspect]
     Active Substance: CELECOXIB
     Dosage: 200 MG, BID
     Route: 065
     Dates: start: 20171124
  2. SULFASALAZINE. [Suspect]
     Active Substance: SULFASALAZINE
     Indication: CROHN^S DISEASE
     Dosage: 2 G, BID
     Route: 048
     Dates: start: 2009
  3. PANTOPRAZOLE [Suspect]
     Active Substance: PANTOPRAZOLE
     Dosage: 40 MG, QD
     Route: 065
     Dates: start: 20171124
  4. TYLENOL [Concomitant]
     Active Substance: ACETAMINOPHEN
     Dosage: UNK UNK, AS NEEDED
     Route: 065

REACTIONS (13)
  - Musculoskeletal stiffness [Not Recovered/Not Resolved]
  - Malaise [Not Recovered/Not Resolved]
  - Back pain [Not Recovered/Not Resolved]
  - Ankylosing spondylitis [Not Recovered/Not Resolved]
  - Arthritis enteropathic [Not Recovered/Not Resolved]
  - Product use in unapproved indication [Unknown]
  - Arthralgia [Not Recovered/Not Resolved]
  - Abdominal discomfort [Not Recovered/Not Resolved]
  - Fatigue [Not Recovered/Not Resolved]
  - Joint effusion [Not Recovered/Not Resolved]
  - Tenderness [Not Recovered/Not Resolved]
  - Drug ineffective [Unknown]
  - Drug ineffective [Not Recovered/Not Resolved]

NARRATIVE: CASE EVENT DATE: 201709
